FAERS Safety Report 7573220-5 (Version None)
Quarter: 2011Q2

REPORT INFORMATION
  Report Type: 
  Country: None (occurrence: None)
  Receive Date: 20110525
  Receipt Date: 20110411
  Transmission Date: 20111010
  Serious: Yes (Hospitalization)
  Sender: FDA-Public Use
  Company Number: 318486

PATIENT
  Age: 41 Year
  Sex: Female
  Weight: 87.5 kg

DRUGS (2)
  1. VICTOZA [Suspect]
     Indication: TYPE 2 DIABETES MELLITUS
     Dosage: 0.6 MG, QD, SUBCUTANEOUS, 1.2 MG, QD, SUBCUTANEOUS
     Route: 058
     Dates: end: 20101108
  2. VICTOZA [Suspect]
     Indication: TYPE 2 DIABETES MELLITUS
     Dosage: 0.6 MG, QD, SUBCUTANEOUS, 1.2 MG, QD, SUBCUTANEOUS
     Route: 058
     Dates: start: 20100914

REACTIONS (4)
  - PANCREATITIS ACUTE [None]
  - DIABETES MELLITUS [None]
  - PANCREATITIS [None]
  - HEPATIC STEATOSIS [None]
